FAERS Safety Report 8559716-8 (Version None)
Quarter: 2012Q3

REPORT INFORMATION
  Report Type: 
  Country: None (occurrence: None)
  Receive Date: 20120727
  Receipt Date: 20120727
  Transmission Date: 20120928
  Serious: Yes (Hospitalization)
  Sender: FDA-Public Use
  Company Number: None

PATIENT
  Age: 82 Year
  Sex: Male
  Weight: 80 kg

DRUGS (20)
  1. DETROL [Concomitant]
  2. FLUROSTAT [Concomitant]
  3. COMBIVENT [Concomitant]
  4. M.V.I. [Concomitant]
  5. AMIOEDEMA [Concomitant]
  6. SYNTHROID [Concomitant]
  7. ZINC SULFATE [Concomitant]
  8. CHLORPERAZINE [Concomitant]
  9. ZOLOFT [Concomitant]
  10. LOVENOX [Suspect]
     Indication: GASTROINTESTINAL TUBE INSERTION
     Dosage: 40MG DAILY SQ CHRONIC
     Route: 058
  11. MIDOTRINE [Concomitant]
  12. LANSOPRAZLE [Concomitant]
  13. ATIVAN [Concomitant]
  14. ASPIRIN [Suspect]
     Indication: AORTIC VALVE STENOSIS
     Dosage: 81M DAILY PO CHRONIC PER J TUBE
     Route: 048
  15. BISCADYL [Concomitant]
  16. TIMADOL [Concomitant]
  17. DONEZEPRIL [Concomitant]
  18. PRAVASTATIN [Concomitant]
  19. APIDRA [Concomitant]
  20. IPRATROPIN [Concomitant]

REACTIONS (3)
  - HYPOTENSION [None]
  - DEVICE DISLOCATION [None]
  - GASTROINTESTINAL HAEMORRHAGE [None]
